FAERS Safety Report 12251924 (Version 1)
Quarter: 2016Q2

REPORT INFORMATION
  Report Type: Spontaneous
  Country: US (occurrence: US)
  Receive Date: 20160411
  Receipt Date: 20160411
  Transmission Date: 20160815
  Serious: Yes (Other)
  Sender: FDA-Public Use
  Company Number: US-009507513-1604USA005379

PATIENT
  Age: 13 Year
  Sex: Female

DRUGS (4)
  1. CLARITIN [Concomitant]
     Active Substance: LORATADINE
     Dosage: 10 MG ONCE DAILY
  2. PRINIVIL [Concomitant]
     Active Substance: LISINOPRIL
     Dosage: 5 MG ONCE DAILY
     Route: 048
  3. NOVOLOG MIX 70/30 [Concomitant]
     Active Substance: INSULIN ASPART
     Dosage: INSULIN PUMP
  4. SINGULAIR [Suspect]
     Active Substance: MONTELUKAST SODIUM
     Indication: ASTHMA
     Dosage: 10 MG, ONCE DAILY AT NIGHT (HS)
     Route: 048
     Dates: end: 20160406

REACTIONS (3)
  - Crying [Recovering/Resolving]
  - Suicidal ideation [Recovering/Resolving]
  - Overdose [Unknown]

NARRATIVE: CASE EVENT DATE: 20160406
